FAERS Safety Report 21128803 (Version 1)
Quarter: 2022Q3

REPORT INFORMATION
  Report Type: Spontaneous
  Country: CA (occurrence: None)
  Receive Date: 20220725
  Receipt Date: 20220725
  Transmission Date: 20221026
  Serious: Yes (Other)
  Sender: FDA-Public Use
  Company Number: CA-ROCHE-3144680

PATIENT
  Sex: Female

DRUGS (9)
  1. RITUXIMAB [Suspect]
     Active Substance: RITUXIMAB
     Indication: Rheumatoid arthritis
     Route: 041
  2. MESTINON [Concomitant]
     Active Substance: PYRIDOSTIGMINE BROMIDE
  3. COLLAGEN [Concomitant]
     Active Substance: COLLAGEN
  4. IRON [Concomitant]
     Active Substance: IRON
  5. VITAMIN C [Concomitant]
     Active Substance: ASCORBIC ACID
  6. PREDNISONE [Concomitant]
     Active Substance: PREDNISONE
  7. METHOTREXATE [Concomitant]
     Active Substance: METHOTREXATE
     Indication: Joint swelling
     Route: 048
  8. DOCONEXENT\ICOSAPENT [Concomitant]
     Active Substance: DOCONEXENT\ICOSAPENT
  9. BIOTIN [Concomitant]
     Active Substance: BIOTIN

REACTIONS (4)
  - Myasthenia gravis [Unknown]
  - Pain [Unknown]
  - Muscular weakness [Unknown]
  - Therapeutic response shortened [Unknown]
